FAERS Safety Report 9736119 (Version 1)
Quarter: 2013Q4

REPORT INFORMATION
  Report Type: Report from Study
  Country: US (occurrence: US)
  Receive Date: 20131206
  Receipt Date: 20131206
  Transmission Date: 20140711
  Serious: Yes (Other)
  Sender: FDA-Public Use
  Company Number: US-ROCHE-1309714

PATIENT
  Age: 6 Year
  Sex: Male
  Weight: 37.46 kg

DRUGS (6)
  1. NUTROPIN AQ [Suspect]
     Indication: HYPOPITUITARISM
     Route: 058
     Dates: end: 20130509
  2. NUTROPIN AQ [Suspect]
     Route: 058
     Dates: start: 20130509
  3. LEVOTHYROXINE [Concomitant]
     Route: 048
  4. CORTEF [Concomitant]
     Route: 048
  5. DDAVP [Concomitant]
     Route: 045
  6. SOLU-CORTEF [Concomitant]
     Route: 058

REACTIONS (6)
  - Polyuria [Unknown]
  - Polydipsia [Unknown]
  - Tinea infection [Unknown]
  - Weight increased [Unknown]
  - Fatigue [Unknown]
  - Dyspnoea [Unknown]
